FAERS Safety Report 25036691 (Version 1)
Quarter: 2025Q1

REPORT INFORMATION
  Report Type: Spontaneous
  Country: GR (occurrence: GR)
  Receive Date: 20250304
  Receipt Date: 20250304
  Transmission Date: 20250409
  Serious: Yes (Other)
  Sender: MYLAN
  Company Number: GR-MYLANLABS-2025M1016774

PATIENT
  Age: 6 Year
  Sex: Male

DRUGS (6)
  1. HYDROCORTISONE [Suspect]
     Active Substance: HYDROCORTISONE
     Indication: Adrenoleukodystrophy
  2. HYDROCORTISONE [Suspect]
     Active Substance: HYDROCORTISONE
     Indication: X-linked chromosomal disorder
  3. FLUDROCORTISONE [Suspect]
     Active Substance: FLUDROCORTISONE
     Indication: Adrenoleukodystrophy
  4. FLUDROCORTISONE [Suspect]
     Active Substance: FLUDROCORTISONE
     Indication: X-linked chromosomal disorder
  5. LERIGLITAZONE [Suspect]
     Active Substance: LERIGLITAZONE
     Indication: Adrenoleukodystrophy
  6. LERIGLITAZONE [Suspect]
     Active Substance: LERIGLITAZONE
     Indication: X-linked chromosomal disorder

REACTIONS (1)
  - Drug ineffective [Unknown]
